FAERS Safety Report 16493285 (Version 3)
Quarter: 2019Q3

REPORT INFORMATION
  Report Type: Spontaneous
  Country: US (occurrence: US)
  Receive Date: 20190628
  Receipt Date: 20190815
  Transmission Date: 20191004
  Serious: No
  Sender: FDA-Public Use
  Company Number: US-ASTRAZENECA-2019SE82851

PATIENT
  Sex: Male
  Weight: 72.6 kg

DRUGS (6)
  1. MUCINEX [Concomitant]
     Active Substance: GUAIFENESIN
     Route: 048
  2. FASENRA [Concomitant]
     Active Substance: BENRALIZUMAB
  3. ALBUTEROL. [Concomitant]
     Active Substance: ALBUTEROL
     Indication: ADJUVANT THERAPY
     Dosage: AS REQUIRED
     Route: 055
  4. QVAIR [Concomitant]
  5. PULMICORT TURBUHALER [Suspect]
     Active Substance: BUDESONIDE
     Indication: ASTHMA
     Route: 055
  6. PULMICORT TURBUHALER [Suspect]
     Active Substance: BUDESONIDE
     Indication: ASTHMA
     Dosage: 200 MCG TWO INHALATIONS TWICE A DAY
     Route: 055

REACTIONS (12)
  - Asthma [Not Recovered/Not Resolved]
  - Exercise tolerance decreased [Not Recovered/Not Resolved]
  - Product substitution issue [Unknown]
  - Gait inability [Unknown]
  - Weight increased [Not Recovered/Not Resolved]
  - Respiratory tract infection [Unknown]
  - Respiration abnormal [Unknown]
  - Product dose omission [Unknown]
  - Dyspnoea [Not Recovered/Not Resolved]
  - Therapy cessation [Unknown]
  - Asthma [Unknown]
  - Product use issue [Unknown]
